FAERS Safety Report 17174522 (Version 1)
Quarter: 2019Q4

REPORT INFORMATION
  Report Type: Spontaneous
  Country: US (occurrence: US)
  Receive Date: 20191219
  Receipt Date: 20191219
  Transmission Date: 20200122
  Serious: No
  Sender: FDA-Public Use
  Company Number: US-UCBSA-2014002938

PATIENT
  Age: 28 Year
  Sex: Female
  Weight: 68.03 kg

DRUGS (4)
  1. CIMZIA [Suspect]
     Active Substance: CERTOLIZUMAB PEGOL
     Dosage: 400 MG, MONTHLY (QM)
     Dates: start: 20130612, end: 20131205
  2. VALTREX S [Concomitant]
     Dosage: WHEN NEEEDED, PRN
     Route: 048
  3. PRENATAL [Concomitant]
     Active Substance: VITAMINS
     Dosage: UNK, ONCE DAILY (QD)
     Route: 048
  4. CIMZIA [Suspect]
     Active Substance: CERTOLIZUMAB PEGOL
     Dosage: 400 MG, MONTHLY (QM)
     Dates: start: 20140103, end: 20140130

REACTIONS (3)
  - Measles [Unknown]
  - Arthralgia [Recovered/Resolved]
  - Maternal exposure during pregnancy [Unknown]

NARRATIVE: CASE EVENT DATE: 20130612
